FAERS Safety Report 5143741-3 (Version None)
Quarter: 2006Q4

REPORT INFORMATION
  Report Type: 
  Country: None (occurrence: None)
  Receive Date: 20061106
  Receipt Date: 20060620
  Transmission Date: 20070319
  Serious: Yes (Hospitalization)
  Sender: FDA-Public Use
  Company Number: DE-BAYER-200611417BVD

PATIENT
  Age: 44 Year
  Sex: Male
  Weight: 70 kg

DRUGS (11)
  1. SORAFENIB [Suspect]
     Indication: MALIGNANT MELANOMA
     Route: 048
     Dates: start: 20050216
  2. PACLITAXEL [Suspect]
     Indication: MALIGNANT MELANOMA
     Route: 042
     Dates: start: 20060214
  3. PACLITAXEL [Suspect]
     Route: 042
     Dates: start: 20060601, end: 20060601
  4. CARBOPLATIN [Suspect]
     Indication: MALIGNANT MELANOMA
     Route: 042
     Dates: start: 20060601, end: 20060601
  5. CARBOPLATIN [Suspect]
     Route: 042
     Dates: start: 20060215
  6. ECURAL [Concomitant]
     Route: 003
     Dates: start: 20060201
  7. LEFAX [Concomitant]
     Route: 048
     Dates: start: 20060224
  8. RIOPAN [Concomitant]
     Route: 065
     Dates: start: 20060604, end: 20060604
  9. CIPROBAY [Concomitant]
     Route: 065
     Dates: start: 20060402, end: 20060415
  10. CIPROBAY [Concomitant]
     Route: 065
     Dates: start: 20060614
  11. NEUPOGEN [Concomitant]
     Route: 065
     Dates: start: 20060411, end: 20060415

REACTIONS (1)
  - PLEURAL EFFUSION [None]
